FAERS Safety Report 4648857-3 (Version None)
Quarter: 2005Q2

REPORT INFORMATION
  Report Type: 
  Country: None (occurrence: None)
  Receive Date: 20050427
  Receipt Date: 20050414
  Transmission Date: 20051028
  Serious: Yes (Hospitalization)
  Sender: FDA-Public Use
  Company Number: 2005UW04059

PATIENT
  Age: 68 Year
  Sex: Female
  Weight: 63.9 kg

DRUGS (21)
  1. IRESSA [Suspect]
     Indication: NON-SMALL CELL LUNG CANCER
     Dosage: 250 MG QD PO
     Route: 048
     Dates: start: 20041221, end: 20050218
  2. IRESSA [Suspect]
     Indication: NON-SMALL CELL LUNG CANCER
     Dosage: 250 MG QD PO
     Route: 048
     Dates: start: 20050224
  3. LASIX [Concomitant]
  4. LOSEC [Concomitant]
  5. SPIRONOLACTONE [Concomitant]
  6. DIDROCAL [Concomitant]
  7. CITALOPRAM HYDROBROMIDE [Concomitant]
  8. TEMAZEPAM [Concomitant]
  9. PROCHLORPERAZINE [Concomitant]
  10. CIPROFLOXACIN [Concomitant]
  11. VENTOLIN HFA [Concomitant]
  12. SPIRIVA ^BOEHRINGER INGELHEIM^ [Concomitant]
  13. ADVAIR DISKUS 100/50 [Concomitant]
  14. MULTI-VITAMINS [Concomitant]
  15. FERROUS GLUCONATE [Concomitant]
  16. VITAMIN D [Concomitant]
  17. CALCIUM CARBONATE + VITAMIN D [Concomitant]
  18. IMOVANE [Concomitant]
  19. PANTOLOC ^BYK GULDEN^ [Concomitant]
  20. NORMAL SALINE [Concomitant]
  21. K-DUR 10 [Concomitant]

REACTIONS (4)
  - ANAEMIA [None]
  - EROSIVE OESOPHAGITIS [None]
  - OESOPHAGITIS ULCERATIVE [None]
  - UPPER GASTROINTESTINAL HAEMORRHAGE [None]
